FAERS Safety Report 7398849-9 (Version None)
Quarter: 2011Q2

REPORT INFORMATION
  Report Type: 
  Country: None (occurrence: None)
  Receive Date: 20110407
  Receipt Date: 20110328
  Transmission Date: 20111010
  Serious: Yes (Other)
  Sender: FDA-Public Use
  Company Number: US-RANBAXY-2011US-43451

PATIENT

DRUGS (2)
  1. CALAN [Suspect]
     Dosage: 120 MG, UNK
     Route: 065
  2. CALAN [Suspect]
     Indication: HYPERTENSION
     Dosage: 240 MG, UNK
     Route: 065

REACTIONS (3)
  - GAIT DISTURBANCE [None]
  - MALAISE [None]
  - SOMNOLENCE [None]
